FAERS Safety Report 5504459-8 (Version None)
Quarter: 2007Q4

REPORT INFORMATION
  Report Type: 
  Country: None (occurrence: None)
  Receive Date: 20071101
  Receipt Date: 20071025
  Transmission Date: 20080405
  Serious: Yes (Other)
  Sender: FDA-Public Use
  Company Number: US-ELI_LILLY_AND_COMPANY-US200710006751

PATIENT
  Sex: Female

DRUGS (4)
  1. HUMULIN R [Suspect]
     Indication: TYPE 2 DIABETES MELLITUS
     Dates: start: 19960101
  2. HUMULIN R [Suspect]
  3. HUMULIN R [Suspect]
     Route: 042
     Dates: start: 19960101
  4. HUMULIN N [Suspect]
     Indication: TYPE 2 DIABETES MELLITUS
     Dates: start: 19960101

REACTIONS (7)
  - ASTHENIA [None]
  - BLINDNESS TRANSIENT [None]
  - BLOOD GLUCOSE INCREASED [None]
  - DIABETIC BULLOSIS [None]
  - DRUG INEFFECTIVE [None]
  - HERPES ZOSTER [None]
  - WEIGHT INCREASED [None]
